FAERS Safety Report 8231836-7 (Version None)
Quarter: 2012Q1

REPORT INFORMATION
  Report Type: 
  Country: None (occurrence: None)
  Receive Date: 20120323
  Receipt Date: 20120320
  Transmission Date: 20120608
  Serious: No
  Sender: FDA-Public Use
  Company Number: US-PFIZER INC-2012073613

PATIENT
  Sex: Female
  Weight: 49.8 kg

DRUGS (8)
  1. FOLIC ACID [Concomitant]
     Indication: HYPERTENSION
     Dosage: 1 MG, 1X/DAY
  2. MESALAMINE [Concomitant]
     Indication: CROHN'S DISEASE
     Dosage: UNK, DAILY
  3. SINGULAIR [Concomitant]
     Indication: ASTHMA
     Dosage: 10 MG, 1X/DAY
  4. DILTIAZEM [Concomitant]
     Indication: HYPERTENSION
     Dosage: 180 MG, 1X/DAY
  5. DIOVAN [Concomitant]
     Indication: HYPERTENSION
     Dosage: 80 MG, 1X/DAY
  6. CLARINEX [Concomitant]
     Indication: ASTHMA
     Dosage: 5 MG, 1X/DAY
  7. IBUPROFEN (ADVIL) [Suspect]
     Indication: SINUS DISORDER
     Dosage: UNK, AS NEEDED
     Route: 065
     Dates: start: 20120101
  8. ADVIL COLD AND SINUS [Suspect]
     Indication: SINUS DISORDER
     Dosage: UNK, AS NEEDED
     Route: 048
     Dates: end: 20120101

REACTIONS (2)
  - SINUS DISORDER [None]
  - JOINT SWELLING [None]
